FAERS Safety Report 9528649 (Version 1)
Quarter: 2013Q1

REPORT INFORMATION
  Report Type: Spontaneous
  Country: US (occurrence: None)
  Receive Date: 20130320
  Receipt Date: 20130320
  Transmission Date: 20140127
  Serious: Yes (Death, Hospitalization, Other)
  Sender: FDA-Public Use
  Company Number: 075350

PATIENT
  Age: 60 Year
  Sex: Male

DRUGS (4)
  1. ALPRAZOLAM [Suspect]
     Dosage: (ORAL )  THERAPY (TO NOT CONTINUING)
     Route: 048
  2. ACETAMINOPHEN W/OXYCODONE [Suspect]
  3. CLONAZEPAM [Suspect]
  4. GABAPENTIN [Suspect]

REACTIONS (2)
  - Cardio-respiratory arrest [None]
  - Drug administration error [None]
